FAERS Safety Report 11298649 (Version 1)
Quarter: 2015Q3

REPORT INFORMATION
  Report Type: Spontaneous
  Country: US (occurrence: US)
  Receive Date: 20150722
  Receipt Date: 20150722
  Transmission Date: 20151125
  Serious: No
  Sender: FDA-Public Use
  Company Number: US-ELI_LILLY_AND_COMPANY-US201202004455

PATIENT
  Sex: Male
  Weight: 95.24 kg

DRUGS (14)
  1. ACTOS [Concomitant]
     Active Substance: PIOGLITAZONE HYDROCHLORIDE
     Dosage: 45 MG, UNKNOWN
  2. ISOSORBIDE. [Concomitant]
     Active Substance: ISOSORBIDE
     Dosage: 60 MG, BID
  3. CHLORTHALIDONE. [Concomitant]
     Active Substance: CHLORTHALIDONE
     Dosage: 25 MG, UNKNOWN
  4. AMLODIPINE [Concomitant]
     Active Substance: AMLODIPINE BESYLATE
     Dosage: 5 MG, QD
  5. ONGLYZA [Concomitant]
     Active Substance: SAXAGLIPTIN HYDROCHLORIDE
     Dosage: 5 MG, QD
  6. HYDRALAZINE [Concomitant]
     Active Substance: HYDRALAZINE HYDROCHLORIDE
     Dosage: 25 MG, BID
  7. POTASSIUM [Concomitant]
     Active Substance: POTASSIUM
     Dosage: 20 MEQ, BID
  8. EFFIENT [Suspect]
     Active Substance: PRASUGREL HYDROCHLORIDE
     Indication: STENT PLACEMENT
     Dosage: 10 MG, QD
  9. SIMVASTIN [Concomitant]
     Active Substance: SIMVASTATIN
     Dosage: 40 MG, UNKNOWN
  10. RANEXA [Concomitant]
     Active Substance: RANOLAZINE
     Dosage: 100 MG, BID
  11. ASPIRIN. [Concomitant]
     Active Substance: ASPIRIN
     Dosage: 325 MG, UNKNOWN
  12. OMEPRAZOL [Concomitant]
     Active Substance: OMEPRAZOLE
     Dosage: 40 MG, UNKNOWN
  13. CARVEDILOL. [Concomitant]
     Active Substance: CARVEDILOL
     Dosage: 25 MG, BID
  14. AMBIEN [Concomitant]
     Active Substance: ZOLPIDEM TARTRATE
     Dosage: UNK, QD

REACTIONS (1)
  - Tooth extraction [Unknown]
